FAERS Safety Report 5810013-0 (Version None)
Quarter: 2008Q3

REPORT INFORMATION
  Report Type: 
  Country: None (occurrence: None)
  Receive Date: 20080708
  Receipt Date: 20070604
  Transmission Date: 20090109
  Serious: Yes (Hospitalization)
  Sender: FDA-Public Use
  Company Number: SPV1-2007-03176

PATIENT
  Age: 11 Year
  Sex: Male
  Weight: 57.1 kg

DRUGS (7)
  1. PENTASA [Suspect]
     Indication: CROHN'S DISEASE
     Dates: start: 20031001, end: 20031001
  2. MILK OF MAGNESIA TAB [Concomitant]
  3. MAALOX /00082501/ (ALUMINUM HYDROXIDE, MAGNESIUM HYDROXIDE) [Concomitant]
  4. NASONEX (MOMETASONE FUROATE) NASAL SPRAY [Concomitant]
  5. STRATTERA [Concomitant]
  6. TENEX [Concomitant]
  7. MIRALAX [Concomitant]

REACTIONS (2)
  - HYPERSENSITIVITY [None]
  - VOMITING [None]
